FAERS Safety Report 5614911-2 (Version None)
Quarter: 2008Q1

REPORT INFORMATION
  Report Type: 
  Country: None (occurrence: None)
  Receive Date: 20080204
  Receipt Date: 20080204
  Transmission Date: 20080703
  Serious: Yes (Other)
  Sender: FDA-Public Use
  Company Number: None

PATIENT
  Age: 45 Year
  Sex: Female
  Weight: 72.5755 kg

DRUGS (1)
  1. HEPARIN SODIUM INJ [Suspect]
     Indication: COAGULOPATHY
     Dosage: 10,000 USP UNITS 1 IV
     Route: 042
     Dates: start: 20080124, end: 20080124

REACTIONS (3)
  - HYPOTENSION [None]
  - NAUSEA [None]
  - TACHYCARDIA [None]
